FAERS Safety Report 6643143-4 (Version None)
Quarter: 2010Q1

REPORT INFORMATION
  Report Type: 
  Country: None (occurrence: None)
  Receive Date: 20100319
  Receipt Date: 20100309
  Transmission Date: 20100710
  Serious: Yes (Hospitalization)
  Sender: FDA-Public Use
  Company Number: PHHY2010FR10492

PATIENT
  Sex: Female

DRUGS (2)
  1. EXFORGE [Suspect]
     Indication: HYPERTENSION
     Dosage: 1 TABLET DAILY
     Route: 048
     Dates: start: 20071109
  2. HYPERIUM [Concomitant]
     Dosage: 1 DF, BID
     Route: 048
     Dates: start: 20050204

REACTIONS (2)
  - CONDITION AGGRAVATED [None]
  - HYPERCALCAEMIA [None]
